FAERS Safety Report 19750724 (Version 9)
Quarter: 2024Q4

REPORT INFORMATION
  Report Type: Spontaneous
  Country: PL (occurrence: PL)
  Receive Date: 20210826
  Receipt Date: 20241223
  Transmission Date: 20250115
  Serious: Yes (Hospitalization, Other)
  Sender: TEVA
  Company Number: PL-002147023-NVSC2021PL140813

PATIENT
  Age: 62 Year
  Sex: Male
  Weight: 98 kg

DRUGS (24)
  1. ASPIRIN [Suspect]
     Active Substance: ASPIRIN
     Indication: Hypertension
     Dosage: 75 MILLIGRAM, QD
     Route: 065
  2. PANTOPRAZOLE [Suspect]
     Active Substance: PANTOPRAZOLE
     Indication: Helicobacter gastritis
     Dosage: 20 MG, QD (IN THE MORNING)
     Route: 065
  3. PANTOPRAZOLE [Suspect]
     Active Substance: PANTOPRAZOLE
     Indication: Helicobacter gastritis
     Dosage: 2X40 MG; PANTOPRAZOLE SODIUM SESQUIHYDRATE
     Route: 065
  4. TRIMETAZIDINE [Suspect]
     Active Substance: TRIMETAZIDINE
     Indication: Product used for unknown indication
     Dosage: 20 MG, BID (MORNING AND EVENING)
     Route: 065
  5. TRIMETAZIDINE [Suspect]
     Active Substance: TRIMETAZIDINE
     Indication: Product used for unknown indication
     Dosage: 40 MG, QD
     Route: 065
  6. FLUTICASONE PROPIONATE\SALMETEROL XINAFOATE [Suspect]
     Active Substance: FLUTICASONE PROPIONATE\SALMETEROL XINAFOATE
     Indication: Product used for unknown indication
     Dosage: 2 DF (250 ?G +50 ?G) INHALATION
     Route: 055
  7. CARVEDILOL [Suspect]
     Active Substance: CARVEDILOL
     Indication: Product used for unknown indication
     Dosage: 12.5 MG, QD
     Route: 065
  8. CARVEDILOL [Suspect]
     Active Substance: CARVEDILOL
     Indication: Product used for unknown indication
     Dosage: 12.5 MG, BID
     Route: 065
  9. TELMISARTAN [Suspect]
     Active Substance: TELMISARTAN
     Indication: Product used for unknown indication
     Dosage: 80 MG, QD (IN MORNING)
     Route: 065
  10. HYDROCHLOROTHIAZIDE [Suspect]
     Active Substance: HYDROCHLOROTHIAZIDE
     Indication: Product used for unknown indication
     Dosage: 12.5 MILLIGRAM, QD
     Route: 065
  11. HYDROCHLOROTHIAZIDE [Suspect]
     Active Substance: HYDROCHLOROTHIAZIDE
     Indication: Product used for unknown indication
     Dosage: 12.5 MILLIGRAM, QD
     Route: 065
  12. CLOPIDOGREL [Suspect]
     Active Substance: CLOPIDOGREL BISULFATE
     Indication: Postoperative care
     Dosage: CLOPIDOGREL HYDROCHLORIDE
     Route: 065
  13. FENOBIBRATE [Suspect]
     Active Substance: FENOFIBRATE
     Indication: Product used for unknown indication
     Dosage: 215 MG, QD (IN THE MORNING)
     Route: 065
  14. BISOPROLOL [Suspect]
     Active Substance: BISOPROLOL
     Indication: Heart failure with reduced ejection fraction
     Dosage: BISOPROLOL FUMARATE, 7.5 MILLIGRAM (BISOPROLOL SALT NOT SPECIFIED)
     Route: 065
  15. ESOMEPRAZOLE [Suspect]
     Active Substance: ESOMEPRAZOLE
     Indication: Renal failure
     Dosage: 20 MG (GASTRO-RESISTANT TABLET) , ESOMEPRAZOLE MAGNESIUM
     Route: 065
  16. BISOPROLOL FUMARATE [Suspect]
     Active Substance: BISOPROLOL FUMARATE
     Indication: Coronary artery disease
     Route: 065
  17. LINAGLIPTIN [Suspect]
     Active Substance: LINAGLIPTIN
     Indication: Product used for unknown indication
     Dosage: 5 MG, 1X/DAY
     Route: 065
  18. LINAGLIPTIN [Suspect]
     Active Substance: LINAGLIPTIN
     Indication: Product used for unknown indication
     Dosage: 5 MG, QD
     Route: 065
  19. METFORMIN [Suspect]
     Active Substance: METFORMIN HYDROCHLORIDE
     Indication: Product used for unknown indication
     Dosage: 850 MG, TID
     Route: 065
  20. RAMIPRIL [Suspect]
     Active Substance: RAMIPRIL
     Indication: Coronary artery disease
     Dosage: 10 MILLIGRAM
     Route: 065
  21. ESOMEPRAZOLE SODIUM [Concomitant]
     Active Substance: ESOMEPRAZOLE SODIUM
     Indication: Renal failure
     Dosage: 20 MILLIGRAM
     Route: 065
  22. AMLODIPINE\RAMIPRIL [Suspect]
     Active Substance: AMLODIPINE\RAMIPRIL
     Indication: Coronary artery disease
     Route: 065
  23. ROSUVASTATIN [Suspect]
     Active Substance: ROSUVASTATIN
     Indication: Hypertension
     Dosage: 10 MG, QD (IN THE EVENING)
     Route: 065
  24. ROSUVASTATIN [Suspect]
     Active Substance: ROSUVASTATIN
     Indication: Hypertension
     Route: 065

REACTIONS (68)
  - Hyperlipidaemia [Unknown]
  - Heart failure with reduced ejection fraction [Unknown]
  - Bundle branch block left [Unknown]
  - Ventricular arrhythmia [Unknown]
  - Ventricular tachycardia [Unknown]
  - Rales [Unknown]
  - Mitral valve incompetence [Unknown]
  - Supraventricular tachycardia [Unknown]
  - Tricuspid valve incompetence [Unknown]
  - Electrocardiogram QT prolonged [Unknown]
  - Joint swelling [Unknown]
  - Left ventricular dysfunction [Unknown]
  - Pulmonary valve disease [Unknown]
  - Stenosis [Unknown]
  - Pericardial disease [Unknown]
  - Mitral valve disease [Unknown]
  - Cardiac discomfort [Unknown]
  - Skin lesion [Unknown]
  - Physical examination abnormal [Unknown]
  - Electrocardiogram Q wave abnormal [Unknown]
  - Coronary artery disease [Unknown]
  - Angiopathy [Unknown]
  - Left ventricular hypertrophy [Unknown]
  - Ventricular hypokinesia [Unknown]
  - Acute kidney injury [Unknown]
  - Tricuspid valve incompetence [Unknown]
  - Anaemia macrocytic [Unknown]
  - Hyperlipidaemia [Unknown]
  - Asthenia [Unknown]
  - Chronic kidney disease [Unknown]
  - Occult blood [Unknown]
  - Hypotension [Unknown]
  - Carotid artery stenosis [Unknown]
  - Pericardial effusion [Unknown]
  - Acute myocardial infarction [Unknown]
  - Chronic kidney disease [Unknown]
  - Hepatojugular reflux [Unknown]
  - Carotid arteriosclerosis [Unknown]
  - Ventricular hypokinesia [Unknown]
  - Dyspnoea at rest [Unknown]
  - Systolic dysfunction [Unknown]
  - Fatigue [Unknown]
  - Aortic valve incompetence [Unknown]
  - Rales [Unknown]
  - Helicobacter gastritis [Unknown]
  - Syncope [Unknown]
  - Ejection fraction decreased [Unknown]
  - Cardiomegaly [Unknown]
  - Intestinal obstruction [Unknown]
  - Rales [Unknown]
  - Carotid arteriosclerosis [Unknown]
  - Tricuspid valve incompetence [Unknown]
  - Pericardial effusion [Unknown]
  - Oedema peripheral [Unknown]
  - Echocardiogram abnormal [Unknown]
  - Electrocardiogram Q wave abnormal [Unknown]
  - Angiopathy [Unknown]
  - Mitral valve incompetence [Unknown]
  - Diastolic dysfunction [Unknown]
  - Ill-defined disorder [Unknown]
  - Heart failure with reduced ejection fraction [Unknown]
  - Palpitations [Unknown]
  - Coronary artery stenosis [Unknown]
  - Occult blood [Unknown]
  - Helicobacter gastritis [Unknown]
  - Palpitations [Unknown]
  - Aortic valve incompetence [Unknown]
  - Mitral valve incompetence [Unknown]

NARRATIVE: CASE EVENT DATE: 20190918
